FAERS Safety Report 8073649-5 (Version None)
Quarter: 2012Q1

REPORT INFORMATION
  Report Type: 
  Country: None (occurrence: None)
  Receive Date: 20120126
  Receipt Date: 20120120
  Transmission Date: 20120608
  Serious: Yes (Hospitalization)
  Sender: FDA-Public Use
  Company Number: AU-ROCHE-1026026

PATIENT
  Sex: Male

DRUGS (8)
  1. AMLODIPINE [Concomitant]
     Dates: start: 20000708
  2. METOCLOPRAMIDE [Concomitant]
     Route: 048
     Dates: start: 20110101
  3. OLMESARTAN MEDOXOMIL AND HYDROCHLOROTHIZIDE [Concomitant]
     Dates: start: 20070801, end: 20111219
  4. CARBAMAZEPINE [Concomitant]
     Route: 048
     Dates: start: 20110804
  5. CITALOPRAM HYDROBROMIDE [Concomitant]
     Route: 048
     Dates: start: 20011207
  6. OMEPRAZOLE SR [Concomitant]
     Route: 048
     Dates: start: 20110401
  7. AVASTIN [Suspect]
     Indication: GLIOBLASTOMA MULTIFORME
     Dates: start: 20111205
  8. AVASTIN [Suspect]
     Dates: start: 20111218

REACTIONS (1)
  - BLOOD CREATININE INCREASED [None]
